FAERS Safety Report 16696550 (Version 1)
Quarter: 2019Q3

REPORT INFORMATION
  Report Type: Spontaneous
  Country: US (occurrence: US)
  Receive Date: 20190813
  Receipt Date: 20190813
  Transmission Date: 20191004
  Serious: No
  Sender: FDA-Public Use
  Company Number: US-MYLANLABS-2019M1072080

PATIENT
  Sex: Female

DRUGS (2)
  1. PROMETRIUM [Concomitant]
     Active Substance: PROGESTERONE
     Dosage: UNK
  2. ESTRADIOL TRANSDERMAL SYSTEM [Suspect]
     Active Substance: ESTRADIOL
     Indication: HORMONE REPLACEMENT THERAPY
     Dosage: 1 UNK
     Route: 062

REACTIONS (5)
  - Mood altered [Recovered/Resolved]
  - Depression [Recovered/Resolved]
  - Nasopharyngitis [Recovered/Resolved]
  - Wrong technique in product usage process [Recovered/Resolved]
  - Fatigue [Recovered/Resolved]
